FAERS Safety Report 4530024-5 (Version None)
Quarter: 2004Q4

REPORT INFORMATION
  Report Type: 
  Country: None (occurrence: None)
  Receive Date: 20041217
  Receipt Date: 20041201
  Transmission Date: 20050328
  Serious: Yes (Hospitalization)
  Sender: FDA-Public Use
  Company Number: PHHO2004CA17036

PATIENT
  Age: 59 Year
  Sex: Male
  Weight: 87 kg

DRUGS (3)
  1. ERL 080A [Suspect]
     Indication: RENAL TRANSPLANT
     Dosage: 720 MG, BID
     Route: 048
     Dates: start: 20030823
  2. NEORAL [Suspect]
     Indication: RENAL TRANSPLANT
     Dosage: 100 MG, BID
     Route: 048
     Dates: start: 20041115
  3. BIAXIN [Suspect]
     Indication: PNEUMONIA

REACTIONS (6)
  - AGITATION [None]
  - BACTERIAL INFECTION [None]
  - BLOOD CREATININE INCREASED [None]
  - CONFUSIONAL STATE [None]
  - OEDEMA PERIPHERAL [None]
  - PNEUMONIA [None]
